FAERS Safety Report 5578179-8 (Version None)
Quarter: 2007Q4

REPORT INFORMATION
  Report Type: 
  Country: None (occurrence: None)
  Receive Date: 20071227
  Receipt Date: 20071218
  Transmission Date: 20080405
  Serious: Yes (Life-Threatening, Hospitalization)
  Sender: FDA-Public Use
  Company Number: 008-C5013-07111155

PATIENT
  Age: 69 Year
  Sex: Male
  Weight: 84 kg

DRUGS (9)
  1. CC-5013 (LENALIDOMIDE) (CAPSULES) [Suspect]
     Indication: MULTIPLE MYELOMA
     Dosage: 25 MG, QD X21 DAYS Q28D, ORAL
     Route: 048
     Dates: start: 20050117, end: 20071120
  2. ESOMEPRAZOLE (ESOMEPRAZOLE) [Concomitant]
  3. ACETAMINOPHEN [Concomitant]
  4. MULTIVITAMIN [Concomitant]
  5. CALCIUM (CALCIUM) [Concomitant]
  6. PREDNISONE [Concomitant]
  7. GLUCOSAMINE (GLUCOSAMINE) [Concomitant]
  8. PAMIDRONATE DISODIUM [Concomitant]
  9. IBUPROFEN [Concomitant]

REACTIONS (3)
  - CRANIOPHARYNGIOMA [None]
  - HYDROCEPHALUS [None]
  - OPERATIVE HAEMORRHAGE [None]
